FAERS Safety Report 8071816-8 (Version None)
Quarter: 2012Q1

REPORT INFORMATION
  Report Type: 
  Country: None (occurrence: None)
  Receive Date: 20120126
  Receipt Date: 20120120
  Transmission Date: 20120608
  Serious: Yes (Other)
  Sender: FDA-Public Use
  Company Number: US-BIOGENIDEC-2011BI047808

PATIENT
  Age: 37 Year
  Sex: Female

DRUGS (4)
  1. TYSABRI [Suspect]
     Indication: MULTIPLE SCLEROSIS
     Route: 042
     Dates: start: 20090721
  2. AVONEX [Concomitant]
     Indication: MULTIPLE SCLEROSIS
     Route: 030
  3. IBUPROFEN [Concomitant]
  4. PROVIGIL [Concomitant]

REACTIONS (4)
  - PROGRESSIVE MULTIFOCAL LEUKOENCEPHALOPATHY [None]
  - MEMORY IMPAIRMENT [None]
  - CONFUSIONAL STATE [None]
  - MULTIPLE SCLEROSIS RELAPSE [None]
